FAERS Safety Report 5823732-7 (Version None)
Quarter: 2008Q3

REPORT INFORMATION
  Report Type: 
  Country: None (occurrence: None)
  Receive Date: 20080725
  Receipt Date: 20080715
  Transmission Date: 20090109
  Serious: Yes (Hospitalization, Other)
  Sender: FDA-Public Use
  Company Number: CA-PFIZER INC-2008057536

PATIENT
  Age: 52 Year
  Sex: Female

DRUGS (4)
  1. SUTENT [Suspect]
     Indication: BREAST CANCER
     Route: 048
  2. TRASTUZUMAB [Suspect]
     Indication: BREAST CANCER
  3. TRASTUZUMAB [Suspect]
  4. TRASTUZUMAB [Suspect]

REACTIONS (2)
  - DYSPEPSIA [None]
  - THROMBOCYTOPENIC PURPURA [None]
